FAERS Safety Report 20862232 (Version 1)
Quarter: 2022Q2

REPORT INFORMATION
  Report Type: Report from Study
  Country: IN (occurrence: IN)
  Receive Date: 20220523
  Receipt Date: 20220523
  Transmission Date: 20220721
  Serious: Yes (Life-Threatening, Hospitalization)
  Sender: FDA-Public Use
  Company Number: IN-MYLANLABS-2022M1038480

PATIENT
  Age: 44 Year
  Sex: Female

DRUGS (2)
  1. PACLITAXEL [Suspect]
     Active Substance: PACLITAXEL
     Indication: Breast cancer
     Dosage: UNK UNK, CYCLE (NEOADJUVANT CHEMOTHERAPY; DOSE DENSE)
     Route: 065
  2. CYCLOPHOSPHAMIDE [Concomitant]
     Active Substance: CYCLOPHOSPHAMIDE
     Indication: Breast cancer
     Dosage: UNK, CYCLE (NEOADJUVANT CHEMOTHERAPY; DOSE DENSE)
     Route: 065

REACTIONS (2)
  - Acute respiratory distress syndrome [Unknown]
  - Acute interstitial pneumonitis [Not Recovered/Not Resolved]
